FAERS Safety Report 24383838 (Version 1)
Quarter: 2024Q3

REPORT INFORMATION
  Report Type: Spontaneous
  Country: US (occurrence: None)
  Receive Date: 20240930
  Receipt Date: 20240930
  Transmission Date: 20241017
  Serious: Yes (Life-Threatening)
  Sender: Public
  Company Number: None

PATIENT
  Age: 49 Year
  Sex: Male
  Weight: 90 kg

DRUGS (9)
  1. MONTELUKAST [Suspect]
     Active Substance: MONTELUKAST SODIUM
     Indication: Asthma
     Dosage: OTHER QUANTITY : 1 TABLET(S);?FREQUENCY : AT BEDTIME;?
     Dates: end: 20240715
  2. MONTELUKAST [Suspect]
     Active Substance: MONTELUKAST SODIUM
     Indication: Multiple allergies
  3. VENTOLIN [Concomitant]
     Active Substance: ALBUTEROL SULFATE
  4. VITAMINS [Concomitant]
     Active Substance: VITAMINS
  5. HERBALS\SAW PALMETTO [Concomitant]
     Active Substance: HERBALS\SAW PALMETTO
  6. B-Comples [Concomitant]
  7. B12 [Concomitant]
  8. VITAMIN D3 [Concomitant]
     Active Substance: CHOLECALCIFEROL
  9. Cal/Mag supplement [Concomitant]

REACTIONS (14)
  - Pruritus [None]
  - Hepatic pain [None]
  - Irritability [None]
  - Therapy cessation [None]
  - Withdrawal syndrome [None]
  - Self-destructive behaviour [None]
  - Suicidal ideation [None]
  - Anxiety [None]
  - Anger [None]
  - Confusional state [None]
  - Hallucination [None]
  - Arthralgia [None]
  - Feeling abnormal [None]
  - Product communication issue [None]

NARRATIVE: CASE EVENT DATE: 20240715
